FAERS Safety Report 10342155 (Version 1)
Quarter: 2014Q3

REPORT INFORMATION
  Report Type: Spontaneous
  Country: US (occurrence: US)
  Receive Date: 20140725
  Receipt Date: 20140725
  Transmission Date: 20150326
  Serious: Yes (Hospitalization)
  Sender: FDA-Public Use
  Company Number: US-PFIZER INC-2014207699

PATIENT
  Age: 15 Year
  Sex: Female

DRUGS (1)
  1. QUILLIVANT XR [Suspect]
     Active Substance: METHYLPHENIDATE HYDROCHLORIDE
     Indication: ATTENTION DEFICIT/HYPERACTIVITY DISORDER
     Dosage: 20 MG, 1X/DAY
     Route: 048

REACTIONS (6)
  - Palpitations [Unknown]
  - Mood altered [Unknown]
  - Headache [Unknown]
  - Decreased appetite [Unknown]
  - Affect lability [Unknown]
  - Aggression [Unknown]
